FAERS Safety Report 9771723 (Version 1)
Quarter: 2013Q4

REPORT INFORMATION
  Report Type: Spontaneous
  Country: US (occurrence: US)
  Receive Date: 20131219
  Receipt Date: 20131219
  Transmission Date: 20140711
  Serious: No
  Sender: FDA-Public Use
  Company Number: US-009507513-1312USA006086

PATIENT
  Age: 61 Year
  Sex: Male

DRUGS (1)
  1. LIPTRUZET [Suspect]
     Indication: HYPERCHOLESTEROLAEMIA
     Dosage: 10/40MG/ONCE DAILY
     Route: 048

REACTIONS (1)
  - Cholelithiasis [Unknown]
